FAERS Safety Report 6478557-9 (Version None)
Quarter: 2009Q4

REPORT INFORMATION
  Report Type: 
  Country: None (occurrence: None)
  Receive Date: 20091207
  Receipt Date: 20091125
  Transmission Date: 20100525
  Serious: Yes (Hospitalization)
  Sender: FDA-Public Use
  Company Number: US-ELI_LILLY_AND_COMPANY-US200911007176

PATIENT
  Sex: Female

DRUGS (3)
  1. FORTEO [Suspect]
     Indication: OSTEOPOROSIS
     Dosage: 20 UG, DAILY (1/D)
     Dates: start: 20080901
  2. ANTIBIOTICS [Concomitant]
     Route: 042
     Dates: start: 20091101, end: 20091101
  3. ANTIBIOTICS [Concomitant]
     Route: 048
     Dates: start: 20091101

REACTIONS (5)
  - ASTHMA [None]
  - COUGH [None]
  - DYSPNOEA [None]
  - RIB FRACTURE [None]
  - STRESS FRACTURE [None]
